FAERS Safety Report 8129049-2 (Version None)
Quarter: 2012Q1

REPORT INFORMATION
  Report Type: 
  Country: None (occurrence: None)
  Receive Date: 20120210
  Receipt Date: 20110822
  Transmission Date: 20120608
  Serious: No
  Sender: FDA-Public Use
  Company Number: US-BRISTOL-MYERS SQUIBB COMPANY-15990195

PATIENT

DRUGS (1)
  1. ORENCIA [Suspect]
     Dosage: LOT NO:1D64132:EXP.DATE MAR 14, LOT NO: 1E64328: DATE MAR 14 AND LOT NO OM4579: NOV 13.

REACTIONS (1)
  - INCORRECT STORAGE OF DRUG [None]
